FAERS Safety Report 8230010-8 (Version None)
Quarter: 2012Q1

REPORT INFORMATION
  Report Type: 
  Country: None (occurrence: None)
  Receive Date: 20120323
  Receipt Date: 20120314
  Transmission Date: 20120608
  Serious: No
  Sender: FDA-Public Use
  Company Number: US-BIOGENIDEC-2012BI009227

PATIENT
  Sex: Female

DRUGS (4)
  1. ACETAMINOPHEN [Concomitant]
     Indication: PREMEDICATION
     Route: 048
     Dates: start: 20111201
  2. AVONEX [Suspect]
     Indication: MULTIPLE SCLEROSIS
     Route: 030
     Dates: start: 20050727
  3. IBUPROFEN [Concomitant]
     Indication: PREMEDICATION
  4. NAPROSYN [Concomitant]
     Indication: PREMEDICATION

REACTIONS (7)
  - CHILLS [None]
  - INJECTION SITE PAIN [None]
  - ANAEMIA [None]
  - DIABETES MELLITUS [None]
  - HEADACHE [None]
  - INJECTION SITE HAEMORRHAGE [None]
  - GASTRIC DISORDER [None]
